FAERS Safety Report 8238447-8 (Version None)
Quarter: 2012Q1

REPORT INFORMATION
  Report Type: 
  Country: None (occurrence: None)
  Receive Date: 20120327
  Receipt Date: 20120312
  Transmission Date: 20120608
  Serious: Yes (Other)
  Sender: FDA-Public Use
  Company Number: CA-ROCHE-GNE301951

PATIENT
  Age: 24 Year
  Sex: Female

DRUGS (13)
  1. ALENDRONATE SODIUM [Concomitant]
     Indication: PRODUCT USED FOR UNKNOWN INDICATION
     Dosage: 70 MG EVERY SATURDAY
     Route: 048
  2. ALBUTEROL [Concomitant]
     Indication: PRODUCT USED FOR UNKNOWN INDICATION
     Dosage: 2 PUFF, PRN, DOSE=2 PUFF
  3. VITAMIN D [Concomitant]
     Route: 048
  4. XOLAIR [Suspect]
     Indication: ASTHMA
     Dosage: 300 MG, Q4W
     Route: 058
     Dates: start: 20060101
  5. FLUTICASONE PROPIONATE/SALMETEROL [Concomitant]
     Indication: PRODUCT USED FOR UNKNOWN INDICATION
     Dosage: SALMETEROL: 25 A?G, BID
  6. MOMETASONE FUROATE [Concomitant]
     Indication: PRODUCT USED FOR UNKNOWN INDICATION
     Dosage: 50 UG PER SPRAY, 2 SPRAY DAILY
  7. RANITIDINE [Concomitant]
     Indication: PRODUCT USED FOR UNKNOWN INDICATION
     Dosage: 150 MG, BID
     Route: 048
  8. CITALOPRAM HYDROBROMIDE [Concomitant]
     Indication: PRODUCT USED FOR UNKNOWN INDICATION
     Dosage: 20 MG EVERY OTHER DAY
     Route: 048
  9. FLUTICASONE FUROATE [Concomitant]
     Indication: PRODUCT USED FOR UNKNOWN INDICATION
  10. IGG [Concomitant]
     Indication: BLOOD IMMUNOGLOBULIN G DECREASED
     Dosage: 20 ML, 5/WEEK
  11. CETIRIZINE HYDROCHLORIDE [Concomitant]
     Indication: PRODUCT USED FOR UNKNOWN INDICATION
  12. IPRATROPIUM [Concomitant]
     Indication: PRODUCT USED FOR UNKNOWN INDICATION
     Dosage: PER PEUFF, 4 PUFFS DAILY
  13. OMEPRAZOLE [Concomitant]
     Indication: PRODUCT USED FOR UNKNOWN INDICATION
     Dosage: 20 MG, QD
     Route: 048

REACTIONS (1)
  - DIFFERENTIAL WHITE BLOOD CELL COUNT ABNORMAL [None]
